FAERS Safety Report 6616550-3 (Version None)
Quarter: 2010Q1

REPORT INFORMATION
  Report Type: 
  Country: None (occurrence: None)
  Receive Date: 20100305
  Receipt Date: 20100223
  Transmission Date: 20100710
  Serious: Yes (Other)
  Sender: FDA-Public Use
  Company Number: CH-PFIZER INC-2010023317

PATIENT
  Age: 44 Year
  Sex: Female

DRUGS (4)
  1. XANAX [Suspect]
     Dosage: UNK
     Dates: end: 20030425
  2. SEROPRAM [Suspect]
     Dosage: UNK
     Dates: end: 20030425
  3. TEGRETOL [Suspect]
     Dosage: UNK
     Dates: end: 20030425
  4. LAMICTAL [Suspect]
     Dosage: UNK
     Dates: start: 20030426

REACTIONS (3)
  - ERYTHEMA [None]
  - JOINT SWELLING [None]
  - LIVIDITY [None]
